FAERS Safety Report 20933690 (Version 1)
Quarter: 2022Q2

REPORT INFORMATION
  Report Type: Spontaneous
  Country: US (occurrence: None)
  Receive Date: 20220607
  Receipt Date: 20220607
  Transmission Date: 20220721
  Serious: Yes (Hospitalization)
  Sender: FDA-Public Use
  Company Number: None

PATIENT
  Age: 37 Year
  Sex: Female

DRUGS (1)
  1. CAPECITABINE [Suspect]
     Active Substance: CAPECITABINE
     Dosage: 3500MG DAILY ORAL?
     Route: 048

REACTIONS (3)
  - Diarrhoea [None]
  - Nausea [None]
  - Colectomy [None]

NARRATIVE: CASE EVENT DATE: 20220413
